FAERS Safety Report 25682280 (Version 1)
Quarter: 2025Q3

REPORT INFORMATION
  Report Type: Spontaneous
  Country: US (occurrence: US)
  Receive Date: 20250814
  Receipt Date: 20250814
  Transmission Date: 20251021
  Serious: No
  Sender: ABBVIE
  Company Number: US-ABBVIE-6407328

PATIENT
  Age: 69 Year
  Sex: Female

DRUGS (2)
  1. LINZESS [Suspect]
     Active Substance: LINACLOTIDE
     Indication: Product used for unknown indication
     Route: 048
  2. DUPILUMAB [Suspect]
     Active Substance: DUPILUMAB
     Indication: Psoriasis
     Route: 065
     Dates: start: 202506

REACTIONS (4)
  - Scabies [Unknown]
  - Abdominal pain upper [Unknown]
  - Rash [Unknown]
  - Off label use [Unknown]

NARRATIVE: CASE EVENT DATE: 20250101
